FAERS Safety Report 13535012 (Version 2)
Quarter: 2017Q2

REPORT INFORMATION
  Report Type: Spontaneous
  Country: IT (occurrence: IT)
  Receive Date: 20170511
  Receipt Date: 20170602
  Transmission Date: 20170830
  Serious: Yes (Other)
  Sender: FDA-Public Use
  Company Number: IT-KADMON PHARMACEUTICALS, LLC-KAD-201705-00550

PATIENT
  Age: 51 Year
  Sex: Male

DRUGS (3)
  1. REBETOL [Suspect]
     Active Substance: RIBAVIRIN
     Indication: HEPATITIS C
     Dosage: TABLET
     Route: 048
     Dates: start: 20170418, end: 20170419
  2. RIBAVIRIN 400 MG [Suspect]
     Active Substance: RIBAVIRIN
     Indication: HEPATITIS C
     Dosage: COATED TABLET
     Route: 048
     Dates: start: 20170418, end: 20170419
  3. ZEPATIER [Suspect]
     Active Substance: ELBASVIR\GRAZOPREVIR
     Indication: HEPATITIS C
     Dosage: COATED TABLET
     Route: 048
     Dates: start: 20170419, end: 20170419

REACTIONS (1)
  - Bruxism [Recovered/Resolved]

NARRATIVE: CASE EVENT DATE: 20170419
